FAERS Safety Report 7078986-9 (Version None)
Quarter: 2010Q4

REPORT INFORMATION
  Report Type: 
  Country: None (occurrence: None)
  Receive Date: 20101102
  Receipt Date: 20101029
  Transmission Date: 20110411
  Serious: Yes (Other)
  Sender: FDA-Public Use
  Company Number: BR-ROCHE-715203

PATIENT
  Sex: Female
  Weight: 57 kg

DRUGS (10)
  1. TOCILIZUMAB [Suspect]
     Indication: RHEUMATOID ARTHRITIS
     Route: 042
     Dates: start: 20100927, end: 20101025
  2. RITUXIMAB [Suspect]
     Indication: RHEUMATOID ARTHRITIS
     Route: 042
     Dates: start: 20080101, end: 20080101
  3. ENBREL [Suspect]
     Route: 065
     Dates: start: 20000101
  4. ENBREL [Suspect]
     Dosage: RESTARTED
     Route: 065
  5. CHLOROQUINE PHOSPHATE [Concomitant]
     Dosage: IN THE MORNING
  6. MELOXICAM [Concomitant]
  7. CALCORT [Concomitant]
  8. CALCORT [Concomitant]
  9. ARAVA [Concomitant]
     Dosage: IN THE MORNING
  10. FINASTERIDE [Concomitant]

REACTIONS (3)
  - ARTHROPATHY [None]
  - DRUG INEFFECTIVE [None]
  - NASOPHARYNGITIS [None]
